FAERS Safety Report 8368182-7 (Version None)
Quarter: 2012Q2

REPORT INFORMATION
  Report Type: 
  Country: None (occurrence: None)
  Receive Date: 20120517
  Receipt Date: 20120509
  Transmission Date: 20120825
  Serious: Yes (Death)
  Sender: FDA-Public Use
  Company Number: US-ACTELION-A-US2012-65635

PATIENT

DRUGS (4)
  1. FLOLAN [Concomitant]
  2. SILDENAFIL [Concomitant]
  3. TRACLEER [Suspect]
     Indication: PULMONARY ARTERIAL HYPERTENSION
     Dosage: UNK
     Route: 048
     Dates: start: 20030707
  4. COUMADIN [Concomitant]

REACTIONS (2)
  - DISEASE COMPLICATION [None]
  - PULMONARY ARTERIAL HYPERTENSION [None]
